FAERS Safety Report 5621723-2 (Version None)
Quarter: 2008Q1

REPORT INFORMATION
  Report Type: 
  Country: None (occurrence: None)
  Receive Date: 20080114
  Receipt Date: 20070522
  Transmission Date: 20080703
  Serious: Yes (Other)
  Sender: FDA-Public Use
  Company Number: A03200703283

PATIENT
  Age: 73 Year
  Sex: Female
  Weight: 63.49 kg

DRUGS (8)
  1. PLAVIX [Suspect]
     Indication: STENT PLACEMENT
     Dosage: 75 MG QD - ORAL
     Route: 048
     Dates: start: 20061101
  2. ROSIGLITAZONE MALEATE [Concomitant]
  3. ROSUVASTATIN [Concomitant]
  4. GLIPIZIDE [Concomitant]
  5. TRIAMTERENE [Concomitant]
  6. ACETYLSALICYLIC ACID SRT [Concomitant]
  7. SIMVASTATIN [Concomitant]
  8. BETA-BLOCKER [Concomitant]

REACTIONS (2)
  - ANAEMIA [None]
  - GASTROINTESTINAL HAEMORRHAGE [None]
